FAERS Safety Report 23099344 (Version 1)
Quarter: 2023Q4

REPORT INFORMATION
  Report Type: Spontaneous
  Country: FR (occurrence: FR)
  Receive Date: 20231024
  Receipt Date: 20231024
  Transmission Date: 20240110
  Serious: Yes (Congenital Anomaly)
  Sender: FDA-Public Use
  Company Number: None

PATIENT
  Age: 0 Year
  Sex: Male
  Weight: 3 kg

DRUGS (2)
  1. LEVOTHYROXINE SODIUM [Suspect]
     Active Substance: LEVOTHYROXINE SODIUM
     Indication: Graves^ disease
     Dosage: THE PATIENT^S MOTHER FORM OF DRUG ADMINISTRATION SCORED TABLET
     Route: 064
  2. CARBIMAZOLE [Suspect]
     Active Substance: CARBIMAZOLE
     Indication: Graves^ disease
     Dosage: THE PATIENT^S MOTHER FORM OF DRUG ADMINISTRATION TABLET
     Route: 064

REACTIONS (4)
  - Pyloric stenosis [Recovered/Resolved]
  - Premature baby [Recovered/Resolved]
  - Pulmonary valve thickening [Unknown]
  - Vitello-intestinal duct remnant [Recovered/Resolved]

NARRATIVE: CASE EVENT DATE: 20161201
